FAERS Safety Report 16411155 (Version 1)
Quarter: 2019Q2

REPORT INFORMATION
  Report Type: Spontaneous
  Country: JP (occurrence: JP)
  Receive Date: 20190610
  Receipt Date: 20190610
  Transmission Date: 20190711
  Serious: Yes (Other)
  Sender: FDA-Public Use
  Company Number: JP-JNJFOC-20190609804

PATIENT
  Age: 54 Year
  Sex: Male

DRUGS (2)
  1. BEPRICOR [Concomitant]
     Active Substance: BEPRIDIL
     Route: 065
  2. XARELTO [Suspect]
     Active Substance: RIVAROXABAN
     Indication: ATRIAL FIBRILLATION
     Route: 048

REACTIONS (1)
  - Acute kidney injury [Recovered/Resolved]
